FAERS Safety Report 7589375-2 (Version None)
Quarter: 2011Q3

REPORT INFORMATION
  Report Type: 
  Country: None (occurrence: None)
  Receive Date: 20110705
  Receipt Date: 20110622
  Transmission Date: 20111222
  Serious: Yes (Other)
  Sender: FDA-Public Use
  Company Number: SE-ELI_LILLY_AND_COMPANY-SE201106006801

PATIENT
  Sex: Male

DRUGS (1)
  1. OLANZAPINE [Suspect]
     Dosage: 405 MG, UNK
     Route: 030

REACTIONS (11)
  - FATIGUE [None]
  - DYSARTHRIA [None]
  - INSOMNIA [None]
  - DELIRIUM [None]
  - DYSSTASIA [None]
  - SOMNOLENCE [None]
  - HALLUCINATION [None]
  - ALTERED STATE OF CONSCIOUSNESS [None]
  - DIZZINESS [None]
  - STUPOR [None]
  - POST PROCEDURAL COMPLICATION [None]
